FAERS Safety Report 20076991 (Version 1)
Quarter: 2021Q4

REPORT INFORMATION
  Report Type: Spontaneous
  Country: US (occurrence: None)
  Receive Date: 20211115
  Receipt Date: 20211115
  Transmission Date: 20220303
  Serious: No
  Sender: FDA-Public Use
  Company Number: None

PATIENT
  Age: 54 Year
  Sex: Male

DRUGS (1)
  1. REPATHA [Suspect]
     Active Substance: EVOLOCUMAB
     Route: 058
     Dates: start: 201911

REACTIONS (3)
  - Rhabdomyolysis [None]
  - Cerebrovascular accident [None]
  - Gastrointestinal infection [None]

NARRATIVE: CASE EVENT DATE: 20191115
